FAERS Safety Report 15499405 (Version 3)
Quarter: 2018Q4

REPORT INFORMATION
  Report Type: Spontaneous
  Country: ME (occurrence: ME)
  Receive Date: 20181015
  Receipt Date: 20181114
  Transmission Date: 20190205
  Serious: Yes (Life-Threatening, Hospitalization, Other)
  Sender: FDA-Public Use
  Company Number: ME-009507513-1810MNE005013

PATIENT
  Age: 57 Year
  Sex: Male
  Weight: 72 kg

DRUGS (5)
  1. IMMUNOTHERAPY (UNSPECIFIED) [Interacting]
     Active Substance: UNSPECIFIED INGREDIENT
     Indication: MALIGNANT MELANOMA
     Dosage: 5.2 MILLIGRAM, CD86+,SC, EVERY 8 MONTHS
     Dates: start: 20180426
  2. ZELBORAF [Interacting]
     Active Substance: VEMURAFENIB
     Indication: MALIGNANT MELANOMA
     Dosage: 960 MG, TWICE A DAY
     Route: 048
     Dates: start: 20180523, end: 20180607
  3. EUTHYROX [Concomitant]
     Active Substance: LEVOTHYROXINE SODIUM
     Indication: HYPOTHYROIDISM
     Dosage: 100 MG, DAILY
     Route: 048
     Dates: start: 2008
  4. KEYTRUDA [Suspect]
     Active Substance: PEMBROLIZUMAB
     Indication: MALIGNANT MELANOMA
     Dosage: 2 MG, EVERY 5 WEEKS
     Route: 042
     Dates: start: 20180608, end: 2018
  5. EUTHYROX [Concomitant]
     Active Substance: LEVOTHYROXINE SODIUM
     Dosage: 125 MG, DAILY
     Route: 048

REACTIONS (8)
  - Pancytopenia [Recovered/Resolved]
  - Fatigue [Recovered/Resolved]
  - Proteinuria [Recovered/Resolved]
  - Pyrexia [Recovered/Resolved]
  - Azotaemia [Recovered/Resolved]
  - Hypoalbuminaemia [Recovered/Resolved]
  - Transaminases increased [Recovered/Resolved]
  - Hypotension [Recovered/Resolved]

NARRATIVE: CASE EVENT DATE: 20180622
